FAERS Safety Report 25690118 (Version 1)
Quarter: 2025Q3

REPORT INFORMATION
  Report Type: Spontaneous
  Country: US (occurrence: None)
  Receive Date: 20250815
  Receipt Date: 20250815
  Transmission Date: 20251021
  Serious: Yes (Hospitalization)
  Sender: FDA-CTU
  Company Number: None

PATIENT
  Sex: Female

DRUGS (1)
  1. ICATIBANT [Suspect]
     Active Substance: ICATIBANT ACETATE
     Indication: Product used for unknown indication
     Dates: start: 20200109

REACTIONS (6)
  - Swelling face [None]
  - Lip swelling [None]
  - Pharyngeal swelling [None]
  - Vocal cord inflammation [None]
  - Dysphagia [None]
  - Speech disorder [None]
